FAERS Safety Report 22890202 (Version 2)
Quarter: 2024Q1

REPORT INFORMATION
  Report Type: Spontaneous
  Country: PE (occurrence: PE)
  Receive Date: 20230831
  Receipt Date: 20240313
  Transmission Date: 20240409
  Serious: Yes (Other)
  Sender: FDA-Public Use
  Company Number: PE-PFIZER INC-PV202300055541

PATIENT
  Age: 53 Year
  Sex: Female

DRUGS (2)
  1. XELJANZ [Suspect]
     Active Substance: TOFACITINIB CITRATE
     Dosage: UNK, DAILY
     Route: 048
  2. XELJANZ [Suspect]
     Active Substance: TOFACITINIB CITRATE
     Dosage: UNK, EVERY OTHER DAY
     Route: 048
     Dates: start: 202401

REACTIONS (3)
  - Uterine neoplasm [Unknown]
  - Overweight [Unknown]
  - Off label use [Unknown]

NARRATIVE: CASE EVENT DATE: 20240101
